FAERS Safety Report 19170441 (Version 1)
Quarter: 2021Q2

REPORT INFORMATION
  Report Type: Spontaneous
  Country: FR (occurrence: FR)
  Receive Date: 20210422
  Receipt Date: 20210422
  Transmission Date: 20210717
  Serious: Yes (Other)
  Sender: FDA-Public Use
  Company Number: FR-PFIZER INC-2021061254

PATIENT
  Age: 9 Year
  Sex: Female
  Weight: 60 kg

DRUGS (1)
  1. BESPONSA [Suspect]
     Active Substance: INOTUZUMAB OZOGAMICIN
     Indication: ACUTE LYMPHOCYTIC LEUKAEMIA
     Dosage: 0.8 MG/M2 (I.E. 1.3 MG) ON D1, THEN 0.5 MG/M2 (I.E. 0.8 MG) ON D8 AN D15

REACTIONS (3)
  - Haematotoxicity [Unknown]
  - Pain [Recovered/Resolved]
  - Off label use [Unknown]
